FAERS Safety Report 19006902 (Version 1)
Quarter: 2021Q1

REPORT INFORMATION
  Report Type: Spontaneous
  Country: GB (occurrence: GB)
  Receive Date: 20210315
  Receipt Date: 20210315
  Transmission Date: 20210420
  Serious: Yes (Hospitalization, Other)
  Sender: FDA-Public Use
  Company Number: GB-AUROBINDO-AUR-APL-2021-009878

PATIENT
  Sex: Male

DRUGS (4)
  1. YTRACIS [Suspect]
     Active Substance: YTTRIUM CHLORIDE Y-90
     Indication: B-CELL LYMPHOMA
     Dosage: 1200 MEGABECQUEREL, ONCE A DAY
     Route: 042
     Dates: start: 20070201, end: 20070201
  2. RITUXIMAB. [Suspect]
     Active Substance: RITUXIMAB
     Dosage: 250 MILLIGRAM/SQ. METER
     Route: 065
  3. ZEVALIN [Suspect]
     Active Substance: IBRITUMOMAB TIUXETAN
     Indication: B-CELL LYMPHOMA
     Dosage: 1200 MEGABECQUEREL, ONCE A DAY
     Route: 042
     Dates: start: 20070201, end: 20070201
  4. RITUXIMAB. [Suspect]
     Active Substance: RITUXIMAB
     Indication: B-CELL LYMPHOMA
     Dosage: 250 MILLIGRAM/SQ. METER, ONCE A DAY
     Route: 042

REACTIONS (2)
  - Neutropenic sepsis [Recovered/Resolved]
  - Staphylococcal infection [Recovered/Resolved]

NARRATIVE: CASE EVENT DATE: 20070308
